FAERS Safety Report 7726175-4 (Version None)
Quarter: 2011Q3

REPORT INFORMATION
  Report Type: 
  Country: None (occurrence: None)
  Receive Date: 20110902
  Receipt Date: 20110822
  Transmission Date: 20111222
  Serious: No
  Sender: FDA-Public Use
  Company Number: US-ACTELION-A-NJ2011-53052

PATIENT

DRUGS (2)
  1. SYNTHROID [Concomitant]
     Route: 064
  2. TRACLEER [Suspect]
     Indication: MATERNAL EXPOSURE DURING PREGNANCY
     Dosage: UNK
     Route: 064
     Dates: end: 20100830

REACTIONS (2)
  - MATERNAL EXPOSURE DURING PREGNANCY [None]
  - NORMAL NEWBORN [None]
